FAERS Safety Report 17261318 (Version 1)
Quarter: 2020Q1

REPORT INFORMATION
  Report Type: Spontaneous
  Country: US (occurrence: US)
  Receive Date: 20200113
  Receipt Date: 20200113
  Transmission Date: 20200409
  Serious: Yes (Other)
  Sender: FDA-Public Use
  Company Number: US-UNICHEM PHARMACEUTICALS (USA) INC-UCM202001-000022

PATIENT
  Age: 24 Year
  Sex: Male

DRUGS (1)
  1. DIVALPROEX SODIUM. [Suspect]
     Active Substance: DIVALPROEX SODIUM
     Indication: SEIZURE

REACTIONS (1)
  - Pleural effusion [Recovered/Resolved]
